FAERS Safety Report 8592943-2 (Version None)
Quarter: 2012Q3

REPORT INFORMATION
  Report Type: 
  Country: None (occurrence: None)
  Receive Date: 20120814
  Receipt Date: 20120730
  Transmission Date: 20120928
  Serious: Yes (Hospitalization)
  Sender: FDA-Public Use
  Company Number: DE-ROCHE-1100850

PATIENT
  Age: 69 Year
  Sex: Female

DRUGS (1)
  1. AVASTIN [Suspect]
     Indication: OVARIAN CANCER
     Route: 065

REACTIONS (6)
  - TACHYARRHYTHMIA [None]
  - LARGE INTESTINE PERFORATION [None]
  - PLEURAL EFFUSION [None]
  - THROMBOPHLEBITIS [None]
  - INTESTINAL OBSTRUCTION [None]
  - WOUND INFECTION [None]
